FAERS Safety Report 6288931-1 (Version None)
Quarter: 2009Q3

REPORT INFORMATION
  Report Type: 
  Country: None (occurrence: None)
  Receive Date: 20090729
  Receipt Date: 20090717
  Transmission Date: 20100115
  Serious: Yes (Death, Other)
  Sender: FDA-Public Use
  Company Number: US-PFIZER INC-2009221531

PATIENT
  Sex: Female

DRUGS (1)
  1. VFEND [Suspect]
     Dosage: 250 MG, 2X/DAY

REACTIONS (4)
  - ADENOVIRUS INFECTION [None]
  - HEPATIC FAILURE [None]
  - NON-HODGKIN'S LYMPHOMA [None]
  - SEPTIC SHOCK [None]
